FAERS Safety Report 6166516-5 (Version None)
Quarter: 2009Q2

REPORT INFORMATION
  Report Type: 
  Country: None (occurrence: None)
  Receive Date: 20090424
  Receipt Date: 20090415
  Transmission Date: 20091009
  Serious: Yes (Other)
  Sender: FDA-Public Use
  Company Number: US-ELI_LILLY_AND_COMPANY-US200904003239

PATIENT
  Sex: Female

DRUGS (1)
  1. FORTEO [Suspect]
     Indication: SPINAL FRACTURE

REACTIONS (15)
  - ANGINA PECTORIS [None]
  - ARTHRALGIA [None]
  - BLADDER PROLAPSE [None]
  - BLOOD URINE PRESENT [None]
  - CARDIAC DISORDER [None]
  - GINGIVAL PAIN [None]
  - GROIN PAIN [None]
  - JOINT SWELLING [None]
  - OEDEMA PERIPHERAL [None]
  - PAIN IN EXTREMITY [None]
  - PAIN IN JAW [None]
  - RASH GENERALISED [None]
  - RECTAL PROLAPSE [None]
  - RENAL CYST [None]
  - VAGINAL PROLAPSE [None]
